FAERS Safety Report 8885582 (Version 5)
Quarter: 2013Q4

REPORT INFORMATION
  Report Type: Spontaneous
  Country: US (occurrence: US)
  Receive Date: 20121105
  Receipt Date: 20131231
  Transmission Date: 20140711
  Serious: Yes (Hospitalization, Disabling, Other)
  Sender: FDA-Public Use
  Company Number: US-MERCK-1210USA014647

PATIENT
  Sex: Female
  Weight: 140 kg

DRUGS (6)
  1. FOSAMAX [Suspect]
     Indication: OSTEOPOROSIS
     Dosage: 70 MG, QW
     Route: 048
     Dates: start: 20021015, end: 20080227
  2. CALCIUM (UNSPECIFIED) [Concomitant]
     Dosage: 900 MG, BID
     Dates: start: 2000
  3. CALCIUM (UNSPECIFIED) [Concomitant]
     Dosage: 1200 MG, UNK
     Dates: start: 20060928
  4. CALCIUM (UNSPECIFIED) [Concomitant]
     Dosage: 1500 MG, UNK
     Dates: start: 20060928
  5. VITAMINS (UNSPECIFIED) [Concomitant]
     Dosage: UNK
     Dates: start: 2000
  6. IRON (UNSPECIFIED) [Concomitant]
     Dosage: UNK
     Dates: start: 2001, end: 2002

REACTIONS (25)
  - Femur fracture [Unknown]
  - Femur fracture [Unknown]
  - Femur fracture [Unknown]
  - Femur fracture [Unknown]
  - Intramedullary rod insertion [Unknown]
  - Intramedullary rod insertion [Unknown]
  - Haemorrhagic anaemia [Unknown]
  - Stress fracture [Unknown]
  - Low turnover osteopathy [Unknown]
  - Osteoporosis [Unknown]
  - Ulna fracture [Unknown]
  - Wrist fracture [Unknown]
  - Hypertension [Unknown]
  - Anxiety [Unknown]
  - Hyperlipidaemia [Unknown]
  - Tonsillectomy [Unknown]
  - Rectal haemorrhage [Unknown]
  - Cardiac murmur [Unknown]
  - Pyrexia [Recovered/Resolved]
  - Haemoglobin decreased [Recovered/Resolved]
  - Urinary tract infection [Unknown]
  - Head injury [Unknown]
  - Elbow operation [Unknown]
  - Elbow operation [Unknown]
  - Osteoarthritis [Unknown]
